FAERS Safety Report 15848058 (Version 2)
Quarter: 2019Q1

REPORT INFORMATION
  Report Type: Spontaneous
  Country: US (occurrence: US)
  Receive Date: 20190121
  Receipt Date: 20190307
  Transmission Date: 20190417
  Serious: No
  Sender: FDA-Public Use
  Company Number: US-BAYER-2019-014219

PATIENT
  Sex: Female

DRUGS (6)
  1. CLARITIN [Suspect]
     Active Substance: LORATADINE
     Indication: MYALGIA
  2. CLARITIN [Suspect]
     Active Substance: LORATADINE
     Indication: INFLUENZA LIKE ILLNESS
  3. CLARITIN [Suspect]
     Active Substance: LORATADINE
     Indication: BURNING SENSATION
  4. CLARITIN [Suspect]
     Active Substance: LORATADINE
     Indication: EAR DISCOMFORT
  5. CLARITIN [Suspect]
     Active Substance: LORATADINE
     Indication: MUSCULOSKELETAL STIFFNESS
  6. CLARITIN [Suspect]
     Active Substance: LORATADINE
     Indication: MILIARIA

REACTIONS (1)
  - Drug ineffective for unapproved indication [None]
